FAERS Safety Report 9052340 (Version 1)
Quarter: 2013Q1

REPORT INFORMATION
  Report Type: Spontaneous
  Country: FR (occurrence: FR)
  Receive Date: 20130206
  Receipt Date: 20130206
  Transmission Date: 20140127
  Serious: Yes (Hospitalization, Other)
  Sender: FDA-Public Use
  Company Number: FR-009507513-1301FRA012661

PATIENT
  Age: 0 None
  Sex: Male
  Weight: 3.9 kg

DRUGS (1)
  1. TIENAM 500MG/500MG, POUDRE POUR PERFUSION [Suspect]
     Indication: BACTERIAL INFECTION
     Dosage: 95 MG/KG, QD
     Route: 042
     Dates: start: 20121105, end: 20121111

REACTIONS (3)
  - Mixed liver injury [Recovered/Resolved]
  - Hepatic failure [Recovered/Resolved]
  - Off label use [Unknown]
